FAERS Safety Report 9240430 (Version 1)
Quarter: 2013Q2

REPORT INFORMATION
  Report Type: Spontaneous
  Country: US (occurrence: None)
  Receive Date: 20130417
  Receipt Date: 20130417
  Transmission Date: 20140414
  Serious: No
  Sender: FDA-Public Use
  Company Number: TPA2013A02777

PATIENT
  Age: 83 Year
  Sex: Male
  Weight: 72.58 kg

DRUGS (4)
  1. DEXILANT (DEXLANSOPRAZOLE) [Suspect]
     Indication: GASTROOESOPHAGEAL REFLUX DISEASE
     Dosage: 60MG, 1 IN 1 D, PER ORAL
     Route: 048
     Dates: end: 2009
  2. LEVOTHYROXINE (LEVOTHYROXINE) [Concomitant]
  3. DIAZEPAM (DIAZEPAM) [Concomitant]
  4. HYDROCODONE /APAP 10/325 (PARACETAMOL, HYDROCODONE BITARTRATE) [Concomitant]

REACTIONS (7)
  - Back pain [None]
  - Muscular weakness [None]
  - Oropharyngeal pain [None]
  - Gait disturbance [None]
  - Weight decreased [None]
  - Heart rate irregular [None]
  - Coronary artery occlusion [None]
